FAERS Safety Report 20520137 (Version 1)
Quarter: 2022Q1

REPORT INFORMATION
  Report Type: Spontaneous
  Country: US (occurrence: None)
  Receive Date: 20220225
  Receipt Date: 20220225
  Transmission Date: 20220423
  Serious: Yes (Hospitalization)
  Sender: FDA-Public Use
  Company Number: None

PATIENT
  Age: 68 Year
  Sex: Male
  Weight: 110.25 kg

DRUGS (18)
  1. PRIVIGEN [Suspect]
     Active Substance: HUMAN IMMUNOGLOBULIN G
     Dosage: OTHER FREQUENCY : EVERY 3 WEEKS;?
     Route: 042
     Dates: start: 20220224, end: 20220225
  2. Albuterol sulfate 2.5mg/3mL [Concomitant]
  3. FLECAINIDE [Concomitant]
     Active Substance: FLECAINIDE
  4. LASIX [Concomitant]
     Active Substance: FUROSEMIDE
  5. Latanoprost 0.005% opth [Concomitant]
  6. Magnesium oxide 500mg [Concomitant]
  7. MELOXICAM [Concomitant]
     Active Substance: MELOXICAM
  8. METFORMIN [Concomitant]
     Active Substance: METFORMIN HYDROCHLORIDE
  9. Metoprolol succinate ER 100mg [Concomitant]
  10. Multivitamin Adult [Concomitant]
  11. MYCOPHENOLATE MOFETIL [Concomitant]
     Active Substance: MYCOPHENOLATE MOFETIL
  12. Potassium Chloride ER 20mEq [Concomitant]
  13. Prednisolone 10mg [Concomitant]
  14. TRAMADOL [Concomitant]
     Active Substance: TRAMADOL
  15. Trelegy Ellipta 100-62.5-25mcg [Concomitant]
  16. TRESIBA [Concomitant]
     Active Substance: INSULIN DEGLUDEC
  17. Ventolin 108mcg [Concomitant]
  18. XARELTO [Concomitant]
     Active Substance: RIVAROXABAN

REACTIONS (6)
  - Thrombosis [None]
  - Peripheral swelling [None]
  - Feeling hot [None]
  - Pain in extremity [None]
  - Infusion related reaction [None]
  - Therapy cessation [None]

NARRATIVE: CASE EVENT DATE: 20220224
